FAERS Safety Report 24087618 (Version 1)
Quarter: 2024Q3

REPORT INFORMATION
  Report Type: Report from Study
  Country: BE (occurrence: BE)
  Receive Date: 20240714
  Receipt Date: 20240714
  Transmission Date: 20241017
  Serious: Yes (Death)
  Sender: ABBVIE
  Company Number: BE-ABBVIE-5839000

PATIENT
  Age: 64 Year
  Sex: Male

DRUGS (16)
  1. CARBIDOPA\LEVODOPA [Suspect]
     Active Substance: CARBIDOPA\LEVODOPA
     Indication: Parkinson^s disease
     Dosage: MD: 1.0+3.0ML, CD: 3.8ML/H, ED: 2.20ML, CND: 3.8ML/H DURING 24 HOURS
     Route: 050
     Dates: start: 20240613, end: 20240710
  2. CARBIDOPA\LEVODOPA [Suspect]
     Active Substance: CARBIDOPA\LEVODOPA
     Dosage: MD:  3.0ML, CD: 3.5ML/H, ED: 1.00ML, CND: 3.5ML/H DURING 24 HOURS
     Route: 050
     Dates: start: 20240604, end: 20240607
  3. CARBIDOPA\LEVODOPA [Suspect]
     Active Substance: CARBIDOPA\LEVODOPA
     Dosage: MD: 1.0+3.0ML, CD: 3.6ML/H, ED: 1.30ML, CND: 3.6ML/H DURING 24 HOURS
     Route: 050
     Dates: start: 20240610, end: 20240613
  4. CARBIDOPA\LEVODOPA [Suspect]
     Active Substance: CARBIDOPA\LEVODOPA
     Dosage: MD: 1.0+3.0ML, CD: 3.6ML/H, ED: 1.00ML, CND: 3.6ML/H DURING 24 HOURS
     Route: 050
     Dates: start: 20240607, end: 20240610
  5. METFORMIN HYDROCHLORIDE [Concomitant]
     Active Substance: METFORMIN HYDROCHLORIDE
     Indication: Type 2 diabetes mellitus
     Dosage: FREQUENCY TEXT: FOR MORNING AND EVENING
  6. CLOZAPINE [Concomitant]
     Active Substance: CLOZAPINE
     Indication: Antipsychotic therapy
     Dosage: 0.5 TABLET
  7. CANDESARTAN [Concomitant]
     Active Substance: CANDESARTAN
     Indication: Blood pressure management
     Dosage: FREQUENCY TEXT: IN THE MORNING WHEN YOU WAKE UP
  8. XADAGO [Concomitant]
     Active Substance: SAFINAMIDE MESYLATE
     Indication: Parkinson^s disease
     Dosage: FREQUENCY TEXT: AT 4 HOURS
  9. LORAZEPAM [Concomitant]
     Active Substance: LORAZEPAM
     Indication: Sleep disorder
     Dosage: FREQUENCY TEXT: AT BEDTIME
  10. BENSERAZIDE\LEVODOPA [Concomitant]
     Active Substance: BENSERAZIDE\LEVODOPA
     Indication: Parkinson^s disease
     Dosage: FREQUENCY TEXT: AT BEDTIME
  11. CLOPIDOGREL [Concomitant]
     Active Substance: CLOPIDOGREL BISULFATE
     Indication: Cerebrovascular accident prophylaxis
     Dosage: FREQUENCY TEXT: WHEN WAKE UP
  12. TAMSULOSIN [Concomitant]
     Active Substance: TAMSULOSIN
     Indication: Micturition disorder
  13. BENSERAZIDE\LEVODOPA [Concomitant]
     Active Substance: BENSERAZIDE\LEVODOPA
     Indication: Parkinson^s disease
     Dosage: 0.5 TABLET, FREQUENCY TEXT: AT 4HOUR, 7HOUR
  14. BENSERAZIDE\LEVODOPA [Concomitant]
     Active Substance: BENSERAZIDE\LEVODOPA
     Indication: Parkinson^s disease
     Dosage: FREQUENCY TEXT: AT 9HOUR AND 11HOUR
  15. BENSERAZIDE\LEVODOPA [Concomitant]
     Active Substance: BENSERAZIDE\LEVODOPA
     Indication: Parkinson^s disease
     Dosage: 0.5 TABLET, FREQUENCY TEXT: AT 11HOUR
  16. BENSERAZIDE\LEVODOPA [Concomitant]
     Active Substance: BENSERAZIDE\LEVODOPA
     Indication: Parkinson^s disease
     Dosage: 0.75 TABLET,  FREQUENCY TEXT: AT 15HOUR AND 17HOUR

REACTIONS (1)
  - Death [Fatal]

NARRATIVE: CASE EVENT DATE: 20240701
